FAERS Safety Report 5367565-7 (Version None)
Quarter: 2007Q2

REPORT INFORMATION
  Report Type: 
  Country: None (occurrence: None)
  Receive Date: 20070622
  Receipt Date: 20061221
  Transmission Date: 20071010
  Serious: No
  Sender: FDA-Public Use
  Company Number: US-ASTRAZENECA-2006UW28371

PATIENT
  Age: 84 Year
  Sex: Male
  Weight: 96.6 kg

DRUGS (3)
  1. PULMICORT RESPULES [Suspect]
     Indication: ASBESTOSIS
     Route: 055
     Dates: start: 20061001
  2. FORADIL [Concomitant]
  3. SPIRIVA [Concomitant]

REACTIONS (3)
  - BURNING SENSATION [None]
  - FEELING ABNORMAL [None]
  - HYPERHIDROSIS [None]
